FAERS Safety Report 7915583-4 (Version None)
Quarter: 2011Q4

REPORT INFORMATION
  Report Type: 
  Country: None (occurrence: None)
  Receive Date: 20111115
  Receipt Date: 20110727
  Transmission Date: 20120403
  Serious: No
  Sender: FDA-Public Use
  Company Number: US-BRISTOL-MYERS SQUIBB COMPANY-15929979

PATIENT
  Age: 8 Decade
  Sex: Male

DRUGS (1)
  1. YERVOY [Suspect]
     Dates: start: 20110701

REACTIONS (1)
  - DIARRHOEA [None]
